FAERS Safety Report 9811554 (Version 1)
Quarter: 2014Q1

REPORT INFORMATION
  Report Type: Spontaneous
  Country: US (occurrence: US)
  Receive Date: 20140110
  Receipt Date: 20140110
  Transmission Date: 20141002
  Serious: Yes (Hospitalization)
  Sender: FDA-Public Use
  Company Number: US-SANOFI-AVENTIS-2013SA032981

PATIENT
  Age: 83 Year
  Sex: Male
  Weight: 73 kg

DRUGS (11)
  1. PLAVIX [Suspect]
     Indication: ACUTE CORONARY SYNDROME
     Route: 048
     Dates: start: 20120622, end: 20120622
  2. PLAVIX [Suspect]
     Indication: ACUTE CORONARY SYNDROME
     Route: 048
     Dates: start: 20120623, end: 20120626
  3. ASPIRIN [Suspect]
     Indication: ACUTE CORONARY SYNDROME
     Route: 048
     Dates: start: 20120622, end: 20120626
  4. HEPARIN SODIUM [Suspect]
     Indication: ACUTE CORONARY SYNDROME
     Route: 042
     Dates: start: 20120622, end: 20120623
  5. ATORVASTATIN [Concomitant]
     Dates: start: 20120622
  6. CLONIDINE [Concomitant]
     Dates: start: 20120622
  7. FUROSEMIDE [Concomitant]
     Dates: start: 20120622
  8. GLIPIZIDE [Concomitant]
     Dates: start: 20120622
  9. LOSARTAN [Concomitant]
     Dates: start: 20120622
  10. TAMSULOSIN [Concomitant]
     Dates: start: 20120622
  11. LANTUS [Concomitant]
     Dosage: DOSE:15 UNIT(S)
     Dates: start: 20120622

REACTIONS (1)
  - Haematochezia [Recovered/Resolved]
